FAERS Safety Report 16589466 (Version 1)
Quarter: 2019Q3

REPORT INFORMATION
  Report Type: Spontaneous
  Country: US (occurrence: US)
  Receive Date: 20190604
  Receipt Date: 20190604
  Transmission Date: 20191004
  Serious: Yes (Other)
  Sender: FDA-Public Use
  Company Number: None

PATIENT
  Age: 67 Year
  Sex: Male
  Weight: 70.31 kg

DRUGS (1)
  1. RHOPRESSA [Suspect]
     Active Substance: NETARSUDIL MESYLATE
     Indication: GLAUCOMA
     Dosage: ?          QUANTITY:30 TOT - TOTAL;?
     Route: 047
     Dates: start: 20190427, end: 20190604

REACTIONS (1)
  - Ocular hyperaemia [None]

NARRATIVE: CASE EVENT DATE: 20190519
